FAERS Safety Report 7759529-0 (Version None)
Quarter: 2011Q3

REPORT INFORMATION
  Report Type: 
  Country: None (occurrence: None)
  Receive Date: 20110919
  Receipt Date: 20110919
  Transmission Date: 20111222
  Serious: No
  Sender: FDA-Public Use
  Company Number: None

PATIENT
  Sex: Male
  Weight: 79 kg

DRUGS (1)
  1. DAPTOMYCIN [Suspect]
     Indication: ABDOMINAL INFECTION
     Dosage: 500MG
     Route: 011
     Dates: start: 20110828, end: 20110903

REACTIONS (2)
  - ABDOMINAL ABSCESS [None]
  - RASH GENERALISED [None]
